FAERS Safety Report 4519919-6 (Version None)
Quarter: 2004Q4

REPORT INFORMATION
  Report Type: 
  Country: None (occurrence: None)
  Receive Date: 20041202
  Receipt Date: 20041202
  Transmission Date: 20050328
  Serious: No
  Sender: FDA-Public Use
  Company Number: None

PATIENT
  Age: 68 Year
  Sex: Male

DRUGS (1)
  1. ADVAIR DISKUS 100/50 [Suspect]
     Indication: ASTHMA
     Dosage: 1 INHALATION  TWICE DAILY  RESPIRATORY
     Route: 055
     Dates: start: 20021001, end: 20041031

REACTIONS (2)
  - ALLERGIC GRANULOMATOUS ANGIITIS [None]
  - LEUKOCYTOCLASTIC VASCULITIS [None]
